FAERS Safety Report 8804865 (Version 2)
Quarter: 2015Q1

REPORT INFORMATION
  Report Type: Report from Study
  Country: US (occurrence: US)
  Receive Date: 20120924
  Receipt Date: 20150105
  Transmission Date: 20150721
  Serious: Yes (Death, Other)
  Sender: FDA-Public Use
  Company Number: US-ROCHE-1126224

PATIENT
  Sex: Male
  Weight: 120.76 kg

DRUGS (24)
  1. VERSED [Suspect]
     Active Substance: MIDAZOLAM HYDROCHLORIDE
     Indication: SEDATION
     Route: 065
  2. BENADRYL [Concomitant]
     Active Substance: DIPHENHYDRAMINE HYDROCHLORIDE
     Route: 048
  3. ALOXI [Concomitant]
     Active Substance: PALONOSETRON HYDROCHLORIDE
     Route: 042
  4. ARANESP [Concomitant]
     Active Substance: DARBEPOETIN ALFA
     Route: 042
  5. AVASTIN [Suspect]
     Active Substance: BEVACIZUMAB
     Indication: RENAL CANCER
     Route: 042
     Dates: start: 20040507
  6. ANDROGEL [Concomitant]
     Active Substance: TESTOSTERONE
     Dosage: AS DIRECTED
     Route: 065
     Dates: start: 20031121
  7. PLENDIL [Concomitant]
     Active Substance: FELODIPINE
     Route: 048
     Dates: start: 20011115
  8. INTERLEUKIN-2 [Concomitant]
     Active Substance: ALDESLEUKIN
  9. AVASTIN [Suspect]
     Active Substance: BEVACIZUMAB
     Indication: MALIGNANT URINARY TRACT NEOPLASM
  10. XANAX [Concomitant]
     Active Substance: ALPRAZOLAM
     Dosage: PRN
     Route: 065
     Dates: start: 20040108
  11. VICODIN [Concomitant]
     Active Substance: ACETAMINOPHEN\HYDROCODONE BITARTRATE
     Dosage: 1-2 TAB Q4-Q6 HRS PRN PAIN
     Route: 048
  12. MIRALAX [Concomitant]
     Active Substance: POLYETHYLENE GLYCOL 3350
     Dosage: 1 TBSP PRN/DAY
     Route: 048
  13. VITAMIN B12 [Concomitant]
     Active Substance: CYANOCOBALAMIN
     Dosage: 3
     Route: 048
     Dates: start: 20040120
  14. ZOMETA [Concomitant]
     Active Substance: ZOLEDRONIC ACID
     Route: 065
     Dates: start: 20040206
  15. AMBIEN [Concomitant]
     Active Substance: ZOLPIDEM TARTRATE
     Route: 048
  16. COLACE [Concomitant]
     Active Substance: DOCUSATE SODIUM
     Route: 065
     Dates: start: 20040108
  17. LEXAPRO [Concomitant]
     Active Substance: ESCITALOPRAM OXALATE
     Route: 048
  18. PRILOSEC [Concomitant]
     Active Substance: OMEPRAZOLE MAGNESIUM
     Route: 048
     Dates: start: 20031121
  19. TYLENOL [Concomitant]
     Active Substance: ACETAMINOPHEN
     Route: 048
  20. FENTANYL. [Concomitant]
     Active Substance: FENTANYL
     Route: 065
  21. DILAUDID [Concomitant]
     Active Substance: HYDROMORPHONE HYDROCHLORIDE
     Dosage: PRN
     Route: 065
  22. BAYER LOW STRENGTH [Concomitant]
     Route: 048
     Dates: start: 20010115
  23. KEFLEX TABS [Concomitant]
     Route: 048
  24. ADVIL [Concomitant]
     Active Substance: IBUPROFEN
     Dosage: PRN
     Route: 065

REACTIONS (21)
  - Disorientation [Unknown]
  - Skin exfoliation [Unknown]
  - Bone cancer metastatic [Unknown]
  - Metastases to lung [Unknown]
  - Pain [Unknown]
  - Fatigue [Unknown]
  - Bone cancer [Unknown]
  - Cholelithiasis [Unknown]
  - Erythema [Unknown]
  - Confusional state [Unknown]
  - Dry skin [Unknown]
  - Somnolence [Unknown]
  - Nausea [Unknown]
  - Constipation [Unknown]
  - Humerus fracture [Unknown]
  - Radiation skin injury [Unknown]
  - Rash pruritic [Recovered/Resolved]
  - Asthenia [Unknown]
  - Musculoskeletal pain [Unknown]
  - Off label use [Unknown]
  - Death [Fatal]
